FAERS Safety Report 8682202 (Version 8)
Quarter: 2013Q1

REPORT INFORMATION
  Report Type: Report from Study
  Country: JP (occurrence: JP)
  Receive Date: 20120725
  Receipt Date: 20130201
  Transmission Date: 20140127
  Serious: Yes (Death, Other)
  Sender: FDA-Public Use
  Company Number: JP-VERTEX PHARMACEUTICAL INC.-AE-2012-008227

PATIENT
  Age: 71 Year
  Sex: Female

DRUGS (52)
  1. VX-950 (TELAPREVIR) [Suspect]
     Indication: CHRONIC HEPATITIS C
     Dosage: 1500 MG, QD
     Route: 048
     Dates: start: 20120224, end: 20120508
  2. VX-950 (TELAPREVIR) [Suspect]
     Dosage: 1000 MG, QD
     Route: 048
     Dates: start: 20120509, end: 20120516
  3. VX-950 (TELAPREVIR) [Suspect]
     Dosage: 500 MG, QD
     Route: 048
     Dates: start: 20120516, end: 20120517
  4. REBETOL [Suspect]
     Indication: CHRONIC HEPATITIS C
     Dosage: 600 MG, QD
     Route: 048
     Dates: start: 20120224, end: 20120424
  5. REBETOL [Suspect]
     Dosage: 400 MG, QD
     Route: 048
     Dates: start: 20120425, end: 20120515
  6. REBETOL [Suspect]
     Dosage: 200 MG, QD
     Route: 048
     Dates: start: 20120516, end: 20120601
  7. PEGINTRON [Suspect]
     Indication: CHRONIC HEPATITIS C
     Dosage: 1 ?G/KG, QW
     Route: 058
     Dates: start: 20120224
  8. PEGINTRON [Suspect]
     Dosage: 80 ?G, QW
     Route: 058
     Dates: start: 20120425, end: 20120516
  9. PEGINTRON [Suspect]
     Dosage: 80 ?G, QW
     Route: 058
     Dates: start: 20120530, end: 20120530
  10. BFLUID [Concomitant]
     Dosage: 500 ML, QD
     Route: 042
     Dates: start: 20120418, end: 20120418
  11. BFLUID [Concomitant]
     Dosage: 1000 ML, QD
     Route: 042
     Dates: start: 20120419, end: 20120425
  12. SEISHOKU [Concomitant]
     Dosage: 10 ML, QD
     Route: 042
     Dates: start: 20120418, end: 20120425
  13. SEISHOKU [Concomitant]
     Dosage: 10 ML, QD
     Route: 042
     Dates: start: 20120523, end: 20120525
  14. SEISHOKU [Concomitant]
     Dosage: 10 ML, QD
     Route: 042
     Dates: start: 20120608, end: 20120613
  15. SEISHOKU [Concomitant]
     Dosage: 0.9% 20 ML/ TIME
     Route: 042
     Dates: start: 20120703, end: 20120703
  16. SEISHOKU [Concomitant]
     Dosage: 0.9% 20 ML/ TIME
     Route: 042
     Dates: start: 20120704, end: 20120704
  17. SEISHOKU [Concomitant]
     Dosage: 0.9% 20 ML/ TIME
     Route: 042
     Dates: start: 20120705, end: 20120705
  18. SEISHOKU [Concomitant]
     Dosage: 0.9% 100 ML/ DAY
     Route: 042
     Dates: start: 20120628, end: 20120702
  19. NORVASC [Concomitant]
     Dosage: 5 MG, QD
     Route: 048
     Dates: end: 20120401
  20. BLOPRESS [Concomitant]
     Dosage: 4 MG, QD
     Route: 048
     Dates: end: 20120401
  21. ALBUMIN [Concomitant]
     Dosage: 50 ML, QD
     Route: 042
     Dates: start: 20120523, end: 20120525
  22. ALBUMIN [Concomitant]
     Dosage: 150 ML, QD
     Route: 042
     Dates: start: 20120703, end: 20120703
  23. MORIHEPAMIN [Concomitant]
     Dosage: 500 ML, QD
     Route: 042
     Dates: start: 20120608, end: 20120613
  24. SOLITAX-H [Concomitant]
     Dosage: 500 ML, QD
     Route: 042
     Dates: start: 20120608, end: 20120608
  25. SOLITAX-H [Concomitant]
     Dosage: 1000 ML, QD
     Route: 042
     Dates: start: 20120609, end: 20120611
  26. SOLITAX-H [Concomitant]
     Dosage: 500 ML, QD
     Route: 042
     Dates: start: 20120619, end: 20120619
  27. SOLITAX-H [Concomitant]
     Dosage: 1000 ML, QD
     Route: 042
     Dates: start: 20120703, end: 20120703
  28. SOLITAX-H [Concomitant]
     Dosage: 500 ML, QD
     Route: 042
     Dates: start: 20120704, end: 20120704
  29. KAYTWO N [Concomitant]
     Dosage: 10 MG/ 2 ML/ DAY
     Route: 042
     Dates: start: 20120608, end: 20120613
  30. VITAMEDIN [Concomitant]
     Dosage: 1 VIAL QD
     Route: 042
     Dates: start: 20120609, end: 20120619
  31. VITAMEDIN [Concomitant]
     Dosage: 1 VIAL, QD
     Route: 042
     Dates: start: 20120623, end: 20120703
  32. NEOPHAGEN [Concomitant]
     Dosage: 40 ML, QD
     Route: 042
     Dates: start: 20120609, end: 20120613
  33. NEOPHAGEN [Concomitant]
     Dosage: 80 ML, QD
     Route: 042
     Dates: start: 20120614, end: 20120703
  34. NEOPHAGEN [Concomitant]
     Dosage: 40 ML, QD
     Route: 042
     Dates: start: 20120704, end: 20120705
  35. SODIUM CHLORIDE [Concomitant]
     Dosage: 40 ML, QD
     Route: 051
     Dates: start: 20120614, end: 20120618
  36. SODIUM CHLORIDE [Concomitant]
     Dosage: 20 ML, QD
     Route: 051
     Dates: start: 20120619, end: 20120619
  37. SODIUM CHLORIDE [Concomitant]
     Dosage: 40 ML, QD
     Route: 051
     Dates: start: 20120703, end: 20120703
  38. SODIUM CHLORIDE [Concomitant]
     Dosage: 20 ML, QD
     Route: 051
     Dates: start: 20120705, end: 20120705
  39. LACTEC G [Concomitant]
     Dosage: 500 ML, QD
     Route: 042
     Dates: start: 20120619, end: 20120702
  40. LASIX [Concomitant]
     Dosage: 20 MG/ 2 ML/ DAY
     Route: 042
     Dates: start: 20120628, end: 20120705
  41. SOLDACTONE [Concomitant]
     Dosage: 200 MG, QD
     Route: 042
     Dates: start: 20120703, end: 20120704
  42. SOLDACTONE [Concomitant]
     Dosage: 400 MG, QD
     Route: 042
     Dates: start: 20120705, end: 20120705
  43. HEPAFLUSH [Concomitant]
     Dosage: 100 UNITS/ML SYRINGE/ 10 ML/DAY
     Route: 042
     Dates: start: 20120703, end: 20120705
  44. HICALIQ [Concomitant]
     Dosage: 500 ML, QD
     Route: 042
     Dates: start: 20120704, end: 20120705
  45. VITAJECT [Concomitant]
     Dosage: UNK
     Route: 042
     Dates: start: 20120704, end: 20120705
  46. KCL [Concomitant]
     Dosage: 40 ML, QD
     Route: 042
     Dates: start: 20120704, end: 20120704
  47. KCL [Concomitant]
     Dosage: 60 ML, QD
     Route: 042
     Dates: start: 20120705, end: 20120705
  48. MINERALIN [Concomitant]
     Dosage: 2 ML, QD
     Route: 042
     Dates: start: 20120704, end: 20120704
  49. ROPION [Concomitant]
     Dosage: 50 MG/ 5 ML/ DAY
     Route: 042
     Dates: start: 20120704, end: 20120704
  50. PENTAGIN [Concomitant]
     Dosage: 7.5 MG/ 1 ML/ DAY
     Route: 042
     Dates: start: 20120704, end: 20120704
  51. GLUCOSE [Concomitant]
     Dosage: 500 ML, QD
     Route: 042
     Dates: start: 20120705, end: 20120705
  52. FUTHAN [Concomitant]
     Dosage: 200 MG, QD
     Route: 042
     Dates: start: 20120705, end: 20120705

REACTIONS (4)
  - Acute hepatic failure [Fatal]
  - Decreased appetite [Not Recovered/Not Resolved]
  - Retinopathy [Unknown]
  - Haemoglobin decreased [Not Recovered/Not Resolved]
